FAERS Safety Report 25734332 (Version 1)
Quarter: 2025Q3

REPORT INFORMATION
  Report Type: Report from Study
  Country: EU (occurrence: EU)
  Receive Date: 20250828
  Receipt Date: 20250828
  Transmission Date: 20251020
  Serious: Yes (Hospitalization, Other)
  Sender: ABBVIE
  Company Number: EU-ABBVIE-6426746

PATIENT
  Age: 48 Year
  Sex: Male

DRUGS (2)
  1. SKYRIZI [Suspect]
     Active Substance: RISANKIZUMAB-RZAA
     Indication: Psoriasis
     Dosage: 150 MG IN WEEK 0 AND 4, THEN EVERY 12 WEEKS
     Route: 058
     Dates: start: 20210727
  2. SKYRIZI [Suspect]
     Active Substance: RISANKIZUMAB-RZAA
     Dosage: 150 MG IN WEEK 0 AND 4, THEN EVERY 12 WEEKS
     Route: 058

REACTIONS (9)
  - Dyspnoea [Recovered/Resolved]
  - Haemoptysis [Recovered/Resolved]
  - Peripheral vein thrombosis [Recovered/Resolved]
  - Chest pain [Recovered/Resolved]
  - Pulmonary embolism [Recovered/Resolved]
  - Accident at work [Unknown]
  - Prosthesis implantation [Unknown]
  - Fall [Unknown]
  - Periprosthetic fracture [Unknown]

NARRATIVE: CASE EVENT DATE: 20241120
